FAERS Safety Report 9031812 (Version 2)
Quarter: 2013Q1

REPORT INFORMATION
  Report Type: Spontaneous
  Country: JP (occurrence: JP)
  Receive Date: 20130124
  Receipt Date: 20130131
  Transmission Date: 20140127
  Serious: Yes (Other)
  Sender: FDA-Public Use
  Company Number: JP-PFIZER INC-2013026843

PATIENT
  Age: 3 Year
  Sex: 0

DRUGS (4)
  1. ADRIACIN [Suspect]
     Indication: RENAL CANCER
     Dosage: INJECTION
  2. ETOPOSIDE [Suspect]
     Indication: RENAL CANCER
  3. CYCLOPHOSPHAMIDE [Suspect]
     Indication: RENAL CANCER
  4. VINCRISTINE [Suspect]
     Indication: RENAL CANCER

REACTIONS (2)
  - Second primary malignancy [Recovering/Resolving]
  - Acute myeloid leukaemia [Recovering/Resolving]
